FAERS Safety Report 21810882 (Version 1)
Quarter: 2023Q1

REPORT INFORMATION
  Report Type: Other
  Country: CN (occurrence: None)
  Receive Date: 20230103
  Receipt Date: 20230103
  Transmission Date: 20230417
  Serious: Yes (Other)
  Sender: FDA-Public Use
  Company Number: CN-ROCHE-1844594

PATIENT
  Sex: Male
  Weight: 54 kg

DRUGS (2)
  1. AVASTIN [Suspect]
     Active Substance: BEVACIZUMAB
     Indication: Gastrointestinal carcinoma
     Dosage: FOR OF ADMIN: 100 MG
     Route: 041
     Dates: start: 20160415, end: 20161222
  2. AVASTIN [Suspect]
     Active Substance: BEVACIZUMAB
     Dosage: FOR OF ADMIN: 100 MG
     Route: 041

REACTIONS (6)
  - Hypoaesthesia [Recovering/Resolving]
  - Nail disorder [Unknown]
  - Gait disturbance [Unknown]
  - Back injury [Unknown]
  - Movement disorder [Unknown]
  - Renal impairment [Unknown]
